FAERS Safety Report 7128589-2 (Version None)
Quarter: 2010Q4

REPORT INFORMATION
  Report Type: 
  Country: None (occurrence: None)
  Receive Date: 20101130
  Receipt Date: 20101118
  Transmission Date: 20110411
  Serious: Yes (Hospitalization, Other)
  Sender: FDA-Public Use
  Company Number: US-MYLANLABS-2010S1019860

PATIENT
  Age: 39 Year
  Sex: Male
  Weight: 106.81 kg

DRUGS (10)
  1. ZOLPIDEM TARTRATE [Suspect]
     Indication: SLEEP DISORDER
     Dates: start: 20080901, end: 20100602
  2. ZOLPIDEM TARTRATE [Suspect]
     Indication: INSOMNIA
     Dates: start: 20080901, end: 20100602
  3. ZOLPIDEM TARTRATE [Suspect]
     Route: 060
     Dates: start: 20080901, end: 20100602
  4. ZOLPIDEM TARTRATE [Suspect]
     Indication: INITIAL INSOMNIA
     Route: 060
     Dates: start: 20080901, end: 20100602
  5. CARISOPRODOL [Suspect]
     Indication: BACK PAIN
     Route: 048
     Dates: start: 20080401, end: 20100602
  6. CARISOPRODOL [Suspect]
     Indication: MUSCLE RELAXANT THERAPY
     Route: 048
     Dates: start: 20080401, end: 20100602
  7. HYDROCODONE [Suspect]
     Indication: BACK PAIN
     Route: 048
     Dates: start: 20060101, end: 20100602
  8. AMITRYPTILINE HYDROCHLORIDE [Suspect]
     Indication: SLEEP DISORDER
     Route: 048
     Dates: start: 20060101, end: 20100602
  9. AMITRYPTILINE HYDROCHLORIDE [Suspect]
     Indication: BACK PAIN
     Route: 048
     Dates: start: 20060101, end: 20100602
  10. ANTIDEPRESSANTS [Concomitant]
     Dates: start: 20100501, end: 20100602

REACTIONS (11)
  - AMNESIA [None]
  - BACK PAIN [None]
  - DRUG INEFFECTIVE [None]
  - HALLUCINATION, VISUAL [None]
  - INCOHERENT [None]
  - INTENTIONAL OVERDOSE [None]
  - LOSS OF CONSCIOUSNESS [None]
  - NECK PAIN [None]
  - ROAD TRAFFIC ACCIDENT [None]
  - SOMNOLENCE [None]
  - UNRESPONSIVE TO STIMULI [None]
